FAERS Safety Report 9894229 (Version 2)
Quarter: 2014Q1

REPORT INFORMATION
  Report Type: Spontaneous
  Country: US (occurrence: US)
  Receive Date: 20140213
  Receipt Date: 20140213
  Transmission Date: 20141002
  Serious: Yes (Hospitalization)
  Sender: FDA-Public Use
  Company Number: US-GLAXOSMITHKLINE-A0796468A

PATIENT
  Age: 51 Year
  Sex: Female

DRUGS (11)
  1. AVANDIA [Suspect]
     Indication: TYPE 2 DIABETES MELLITUS
     Dosage: 8MG PER DAY
     Route: 048
     Dates: start: 20030306, end: 20080428
  2. GLUCOPHAGE [Concomitant]
  3. GLUCOTROL [Concomitant]
  4. NEXIUM [Concomitant]
  5. TOPAMAX [Concomitant]
  6. ADVAIR [Concomitant]
  7. PAXIL [Concomitant]
  8. WELLBUTRIN [Concomitant]
  9. ALBUTEROL [Concomitant]
  10. ATROVENT [Concomitant]
  11. GEMFIBROZIL [Concomitant]

REACTIONS (7)
  - Cerebrovascular accident [Not Recovered/Not Resolved]
  - Paralysis [Unknown]
  - Visual impairment [Unknown]
  - Mental impairment [Unknown]
  - Speech disorder [Unknown]
  - Headache [Unknown]
  - Mobility decreased [Unknown]
